FAERS Safety Report 5937754-9 (Version None)
Quarter: 2008Q4

REPORT INFORMATION
  Report Type: 
  Country: None (occurrence: None)
  Receive Date: 20081029
  Receipt Date: 20081014
  Transmission Date: 20090506
  Serious: Yes (Hospitalization)
  Sender: FDA-Public Use
  Company Number: 2008S1018525

PATIENT
  Age: 69 Year
  Sex: Female

DRUGS (5)
  1. SYMBICORT [Suspect]
     Indication: ASTHMA
     Dosage: 3 DF;TWICE A DAY;INHALATION
     Route: 055
  2. SALBUTAMOL (SALBUTAMOL) [Suspect]
     Indication: ASTHMA
     Dosage: 5 MG; 3 TIMES A DAY;INHALATION
     Route: 055
  3. COMBIVENT [Suspect]
     Indication: ASTHMA
     Dosage: INHALATION
     Route: 055
  4. PREDNISONE [Concomitant]
  5. OMEPRAZOLE [Concomitant]

REACTIONS (8)
  - ASTHMA [None]
  - CONDITION AGGRAVATED [None]
  - DRUG DEPENDENCE [None]
  - DYSPNOEA [None]
  - GAIT DISTURBANCE [None]
  - PEAK EXPIRATORY FLOW RATE DECREASED [None]
  - WEIGHT INCREASED [None]
  - WHEEZING [None]
